FAERS Safety Report 23463227 (Version 2)
Quarter: 2024Q1

REPORT INFORMATION
  Report Type: Report from Study
  Country: DE (occurrence: DE)
  Receive Date: 20240131
  Receipt Date: 20240222
  Transmission Date: 20240410
  Serious: No
  Sender: FDA-Public Use
  Company Number: DE-PFM-2023-03255

PATIENT
  Sex: Male
  Weight: 80 kg

DRUGS (20)
  1. BRAFTOVI [Suspect]
     Active Substance: ENCORAFENIB
     Indication: Colorectal cancer
     Dosage: 300 MG/DAY
     Route: 048
     Dates: start: 20200728
  2. BRAFTOVI [Suspect]
     Active Substance: ENCORAFENIB
     Dosage: UNK
     Route: 065
     Dates: start: 20230425
  3. CETUXIMAB [Suspect]
     Active Substance: CETUXIMAB
     Indication: Colorectal cancer
     Dosage: 250 MG/M2, WEEKLY
     Route: 042
     Dates: start: 20200728
  4. CETUXIMAB [Suspect]
     Active Substance: CETUXIMAB
     Dosage: UNK
     Route: 065
     Dates: start: 20230425
  5. DEXAMETHASON MP [DEXAMETHASONE] [Concomitant]
     Indication: Prophylaxis
     Dosage: 8 MG, CYCLICAL
     Route: 042
     Dates: start: 20200728
  6. CLEMASTINE [Concomitant]
     Active Substance: CLEMASTINE
     Indication: Prophylaxis
     Dosage: 2 MG, CYCLICAL
     Route: 042
     Dates: start: 20200728
  7. CANDESARTAN CILEXETIL [Concomitant]
     Active Substance: CANDESARTAN CILEXETIL
     Indication: Hypertension
     Dosage: 32 MG, DAILY
     Route: 048
  8. TAMSULOSIN [Concomitant]
     Active Substance: TAMSULOSIN
     Indication: Benign prostatic hyperplasia
     Dosage: 0.4 MG DAILY
     Route: 048
  9. LEVOTHYROXINE SODIUM [Concomitant]
     Active Substance: LEVOTHYROXINE SODIUM
     Indication: Hypothyroidism
     Dosage: 150 UG, DAILY
     Route: 048
     Dates: end: 20230703
  10. LEVOTHYROXINE SODIUM [Concomitant]
     Active Substance: LEVOTHYROXINE SODIUM
     Indication: Polyneuropathy
     Dosage: 125 UG, DAILY
     Route: 048
     Dates: start: 20230704
  11. EDOXABAN TOSYLATE [Concomitant]
     Active Substance: EDOXABAN TOSYLATE
     Indication: Coronary arterial stent insertion
     Dosage: 30 MG, DAILY
     Route: 048
     Dates: start: 2000
  12. CARVEDILOL [Concomitant]
     Active Substance: CARVEDILOL
     Indication: Hypertension
     Dosage: 25 MG DAILY
     Route: 048
  13. SIMVAZET [Concomitant]
     Indication: Coronary arterial stent insertion
     Dosage: 10.1 MG DAILY
     Route: 048
  14. PREGABALIN [Concomitant]
     Active Substance: PREGABALIN
     Indication: Polyneuropathy
     Dosage: 75 MG, BID (2/DAY)
     Route: 048
  15. HUMAN RED BLOOD CELL [Concomitant]
     Active Substance: HUMAN RED BLOOD CELL
     Dosage: 2 UNKNOWN UNITS DAILY (CONCENTRATE)
     Route: 042
     Dates: start: 20210211, end: 20210211
  16. HUMAN RED BLOOD CELL [Concomitant]
     Active Substance: HUMAN RED BLOOD CELL
     Dosage: 1 UNKNOWN UNIT DAILY
     Route: 042
     Dates: start: 20210223, end: 20210223
  17. HUMAN RED BLOOD CELL [Concomitant]
     Active Substance: HUMAN RED BLOOD CELL
     Dosage: 1 UNKNOWN UNIT DAILY
     Route: 042
     Dates: start: 20210302, end: 20210302
  18. DERMATOP [Concomitant]
     Active Substance: PREDNICARBATE
     Dosage: 1 UNKNOWN UNIT DAILY
     Route: 062
     Dates: start: 20210629, end: 20220131
  19. MINOCYCLINE [Concomitant]
     Active Substance: MINOCYCLINE HYDROCHLORIDE
     Dosage: 50 MG, BID (2/DAY)
     Route: 048
     Dates: start: 20211028, end: 2021
  20. BETAGALEN [Concomitant]
     Dosage: 1 UNKNOWN UNIT DAILY
     Route: 062
     Dates: start: 20220201

REACTIONS (1)
  - Pneumonia [Recovered/Resolved]

NARRATIVE: CASE EVENT DATE: 20230411
